FAERS Safety Report 13868147 (Version 2)
Quarter: 2017Q3

REPORT INFORMATION
  Report Type: Spontaneous
  Country: IL (occurrence: IL)
  Receive Date: 20170814
  Receipt Date: 20170907
  Transmission Date: 20171127
  Serious: Yes (Other)
  Sender: FDA-Public Use
  Company Number: IL-BEH-2017082024

PATIENT
  Age: 7 Month
  Sex: Male

DRUGS (1)
  1. HUMAN FACTOR VIII (NC) [Suspect]
     Active Substance: ANTIHEMOPHILIC FACTOR HUMAN
     Indication: FACTOR VIII DEFICIENCY
     Route: 065

REACTIONS (1)
  - Anti factor VIII antibody positive [Unknown]
